FAERS Safety Report 9856779 (Version 1)
Quarter: 2014Q1

REPORT INFORMATION
  Report Type: Spontaneous
  Country: DE (occurrence: DE)
  Receive Date: 20140130
  Receipt Date: 20140130
  Transmission Date: 20141002
  Serious: Yes (Other)
  Sender: FDA-Public Use
  Company Number: DE-TEVA-457615GER

PATIENT
  Age: 62 Year
  Sex: Male

DRUGS (3)
  1. GLIMEPIRIDE [Suspect]
     Indication: DIABETES MELLITUS
     Route: 048
     Dates: start: 201312
  2. CAPVAL [Suspect]
     Indication: COUGH
     Route: 048
     Dates: start: 201312
  3. MONOPROST [Concomitant]
     Indication: OCULAR HYPERTENSION
     Dates: start: 201303, end: 201401

REACTIONS (1)
  - Ocular hypertension [Recovered/Resolved]
